FAERS Safety Report 9362870 (Version 1)
Quarter: 2013Q2

REPORT INFORMATION
  Report Type: Spontaneous
  Country: FR (occurrence: FR)
  Receive Date: 20130624
  Receipt Date: 20130624
  Transmission Date: 20140414
  Serious: Yes (Hospitalization)
  Sender: FDA-Public Use
  Company Number: FR-GE HEALTHCARE MEDICAL DIAGNOSTICS-OMPQ-NO-1306S-0754

PATIENT
  Age: 78 Year
  Sex: Female

DRUGS (6)
  1. OMNIPAQUE [Suspect]
     Indication: PRODUCT USED FOR UNKNOWN INDICATION
     Route: 042
     Dates: start: 20130419, end: 20130419
  2. OMNIPAQUE [Suspect]
     Indication: DIAGNOSTIC PROCEDURE
  3. GENTAMICINE [Suspect]
     Indication: MENINGITIS BACTERIAL
     Route: 042
     Dates: start: 20130419, end: 20130424
  4. CEFTAZIDIME [Suspect]
     Route: 042
     Dates: start: 20130419, end: 20130419
  5. AMOXICILLIN [Suspect]
     Route: 042
     Dates: start: 20130419, end: 20130510
  6. ROCEPHIN [Concomitant]
     Dates: start: 20130419, end: 20130419

REACTIONS (1)
  - Renal failure acute [Recovering/Resolving]
